FAERS Safety Report 4407819-1 (Version None)
Quarter: 2004Q3

REPORT INFORMATION
  Report Type: 
  Country: None (occurrence: None)
  Receive Date: 20040726
  Receipt Date: 20040721
  Transmission Date: 20050211
  Serious: Yes (Other)
  Sender: FDA-Public Use
  Company Number: US-GLAXOSMITHKLINE-A0519521A

PATIENT
  Age: 21 Year
  Sex: Female

DRUGS (4)
  1. LAMOTRIGINE [Suspect]
     Dosage: 500MG PER DAY
     Dates: start: 19980101
  2. ALLEGRA [Concomitant]
  3. ZYRTEC [Concomitant]
  4. FLUOXETINE [Concomitant]

REACTIONS (1)
  - ABORTION INDUCED [None]
